FAERS Safety Report 7176261 (Version 2)
Quarter: 2018Q4

REPORT INFORMATION
  Report Type: Spontaneous
  Country: GB (occurrence: GB)
  Receive Date: 20091113
  Receipt Date: 20181226
  Transmission Date: 20190205
  Serious: Yes (Hospitalization, Other)
  Sender: FDA-Public Use
  Company Number: GB-PFIZER INC-2009292092

PATIENT
  Age: 28 Year
  Sex: Female

DRUGS (2)
  1. CETUXIMAB. [Suspect]
     Active Substance: CETUXIMAB
     Dosage: UNK
     Dates: start: 20081224
  2. IRINOTECAN HCL [Suspect]
     Active Substance: IRINOTECAN HYDROCHLORIDE
     Dosage: UNK
     Dates: start: 20081222

REACTIONS (3)
  - Headache [Unknown]
  - Encephalopathy [Unknown]
  - Seizure [Unknown]

NARRATIVE: CASE EVENT DATE: 20081225
